FAERS Safety Report 7846125-X (Version None)
Quarter: 2011Q4

REPORT INFORMATION
  Report Type: 
  Country: None (occurrence: None)
  Receive Date: 20111025
  Receipt Date: 20111010
  Transmission Date: 20120403
  Serious: Yes (Hospitalization)
  Sender: FDA-Public Use
  Company Number: GB-WATSON-2011-16915

PATIENT
  Age: 54 Year
  Sex: Male

DRUGS (11)
  1. METFORMIN HCL [Suspect]
     Indication: TYPE 2 DIABETES MELLITUS
     Dosage: 2 G DAILY
  2. GLICLAZIDE (UNKNOWN) [Suspect]
     Indication: TYPE 2 DIABETES MELLITUS
  3. AMITRIPTYLINE HCL [Suspect]
     Indication: PRODUCT USED FOR UNKNOWN INDICATION
  4. CANDESARTAN CILEXETIL [Suspect]
     Indication: PRODUCT USED FOR UNKNOWN INDICATION
  5. LEVOTHYROXINE SODIUM [Suspect]
  6. EXENATIDE [Suspect]
     Indication: TYPE 2 DIABETES MELLITUS
  7. PREGABALIN [Suspect]
     Indication: PRODUCT USED FOR UNKNOWN INDICATION
  8. INSULIN GLARGINE [Suspect]
     Indication: DIABETES MELLITUS
  9. ACETAMINOPHEN [Suspect]
     Indication: TYPE 2 DIABETES MELLITUS
  10. QUININE                            /00046702/ [Suspect]
     Indication: PRODUCT USED FOR UNKNOWN INDICATION
  11. ROSUVASTATIN [Suspect]
     Indication: PRODUCT USED FOR UNKNOWN INDICATION

REACTIONS (1)
  - RENAL FAILURE [None]
